FAERS Safety Report 10445505 (Version 2)
Quarter: 2014Q3

REPORT INFORMATION
  Report Type: Spontaneous
  Country: BR (occurrence: BR)
  Receive Date: 20140910
  Receipt Date: 20140910
  Transmission Date: 20150326
  Serious: Yes (Hospitalization)
  Sender: FDA-Public Use
  Company Number: BR-PFIZER INC-2014146168

PATIENT
  Age: 71 Year
  Sex: Male

DRUGS (1)
  1. SUTENT [Suspect]
     Active Substance: SUNITINIB MALATE
     Indication: RENAL CANCER
     Dosage: 50 MG (ONE CAPSULE), 1X/DAY (4 WEEKS TO EACH 6 WEEKS OF RESTING)
     Route: 048

REACTIONS (4)
  - Hypotension [Recovered/Resolved]
  - Epistaxis [Unknown]
  - Tumour haemorrhage [Unknown]
  - Hypertensive crisis [Recovering/Resolving]
